FAERS Safety Report 8063520-7 (Version None)
Quarter: 2012Q1

REPORT INFORMATION
  Report Type: 
  Country: None (occurrence: None)
  Receive Date: 20120123
  Receipt Date: 20120111
  Transmission Date: 20120608
  Serious: Yes (Other)
  Sender: FDA-Public Use
  Company Number: AR-ELI_LILLY_AND_COMPANY-AR201201003370

PATIENT
  Sex: Female

DRUGS (9)
  1. BYETTA [Suspect]
     Dosage: 10 UG, UNK
     Dates: start: 20120107
  2. ATENOLOL [Concomitant]
  3. BYETTA [Suspect]
     Dosage: UNK
     Dates: end: 20111101
  4. DIOSMIN W/HESPERIDIN [Concomitant]
  5. T4 [Concomitant]
  6. INSULIN [Concomitant]
  7. METFORMIN HCL [Concomitant]
  8. CLONAZEPAM [Concomitant]
  9. LOSARTAN POTASSIUM [Concomitant]

REACTIONS (5)
  - BLOOD GLUCOSE DECREASED [None]
  - TACHYCARDIA [None]
  - PRESYNCOPE [None]
  - DIZZINESS [None]
  - OFF LABEL USE [None]
